FAERS Safety Report 25432505 (Version 1)
Quarter: 2025Q2

REPORT INFORMATION
  Report Type: Report from Study
  Country: US (occurrence: US)
  Receive Date: 20250613
  Receipt Date: 20250613
  Transmission Date: 20250717
  Serious: Yes (Hospitalization, Other)
  Sender: ABBVIE
  Company Number: US-ABBVIE-6322433

PATIENT
  Age: 82 Year
  Sex: Male

DRUGS (1)
  1. VENCLEXTA [Suspect]
     Active Substance: VENETOCLAX
     Indication: Acute myeloid leukaemia
     Route: 048
     Dates: start: 202504

REACTIONS (6)
  - Loss of consciousness [Unknown]
  - Malaise [Unknown]
  - Chills [Unknown]
  - Fatigue [Unknown]
  - Transfusion [Unknown]
  - Platelet transfusion [Unknown]

NARRATIVE: CASE EVENT DATE: 20250101
